FAERS Safety Report 19894043 (Version 1)
Quarter: 2021Q3

REPORT INFORMATION
  Report Type: Spontaneous
  Country: US (occurrence: US)
  Receive Date: 20210929
  Receipt Date: 20210929
  Transmission Date: 20211014
  Serious: Yes (Other)
  Sender: FDA-Public Use
  Company Number: US-SUN PHARMACEUTICAL INDUSTRIES LTD-2021R1-312688

PATIENT
  Age: 38 Year
  Sex: Female

DRUGS (1)
  1. CLINDAMYCIN. [Suspect]
     Active Substance: CLINDAMYCIN
     Indication: PREOPERATIVE CARE
     Dosage: UNK
     Route: 065

REACTIONS (2)
  - Respiratory distress [Unknown]
  - Hypersensitivity [Unknown]
